FAERS Safety Report 19752029 (Version 1)
Quarter: 2021Q3

REPORT INFORMATION
  Report Type: Spontaneous
  Country: GB (occurrence: GB)
  Receive Date: 20210826
  Receipt Date: 20210826
  Transmission Date: 20211014
  Serious: Yes (Other)
  Sender: FDA-Public Use
  Company Number: GB-PFIZER INC-202101049373

PATIENT
  Sex: Female
  Weight: 50.8 kg

DRUGS (1)
  1. SAYANA PRESS [Suspect]
     Active Substance: MEDROXYPROGESTERONE\MEDROXYPROGESTERONE ACETATE
     Indication: CONTRACEPTION
     Dosage: 1 DF, EVERY 3 MONTHS
     Route: 051
     Dates: start: 20150501, end: 20210515

REACTIONS (2)
  - Injection site mass [Not Recovered/Not Resolved]
  - Injection site deformation [Not Recovered/Not Resolved]

NARRATIVE: CASE EVENT DATE: 20180515
